FAERS Safety Report 17820847 (Version 2)
Quarter: 2022Q1

REPORT INFORMATION
  Report Type: Spontaneous
  Country: CH (occurrence: CH)
  Receive Date: 20200525
  Receipt Date: 20220202
  Transmission Date: 20220423
  Serious: Yes (Hospitalization, Other)
  Sender: FDA-Public Use
  Company Number: CH-SM-2020-12984

PATIENT
  Age: 32 Year
  Sex: Male
  Weight: 105 kg

DRUGS (15)
  1. CARVEDILOL [Suspect]
     Active Substance: CARVEDILOL
     Route: 048
     Dates: end: 20200504
  2. AZATHIOPRINE [Suspect]
     Active Substance: AZATHIOPRINE
     Indication: IgA nephropathy
     Route: 048
     Dates: start: 20200406, end: 20200504
  3. BACTRIM [Suspect]
     Active Substance: SULFAMETHOXAZOLE\TRIMETHOPRIM
     Indication: Infection prophylaxis
     Dosage: 800/160 MG 1-0-0-0 (ON TUESDAY, THURSDAY AND SATURDAY RESPECTIVELY);....
     Route: 048
     Dates: end: 202005
  4. PREDNISOLONE [Suspect]
     Active Substance: PREDNISOLONE
     Dosage: 60 MG/DAY ON (04.03.2020) REDUCTION ON 12 MAY 2020 AS THE PATIENT PROGRESSED 5 MG...
     Route: 048
     Dates: start: 20200123
  5. AMLODIPINE BESYLATE [Suspect]
     Active Substance: AMLODIPINE BESYLATE
     Route: 048
     Dates: end: 20200504
  6. DOXAZOSIN [Suspect]
     Active Substance: DOXAZOSIN MESYLATE
     Route: 048
     Dates: end: 20200504
  7. AMPHOTERICIN B [Concomitant]
     Active Substance: AMPHOTERICIN B
  8. CALCIUM\CHOLECALCIFEROL [Concomitant]
     Active Substance: CALCIUM\CHOLECALCIFEROL
     Dosage: CALCIMAGON D3 FORTE...
     Route: 048
     Dates: end: 20200429
  9. CALCIUM-ACETAT-PHOSPHATBINDER [Concomitant]
     Route: 048
  10. METOLAZON GALEPHARM [Concomitant]
     Route: 048
  11. PANTOPRAZOLE SODIUM [Concomitant]
     Active Substance: PANTOPRAZOLE SODIUM
     Route: 048
  12. RENAGEL [Concomitant]
     Active Substance: SEVELAMER HYDROCHLORIDE
     Route: 048
  13. TORSEMIDE [Concomitant]
     Active Substance: TORSEMIDE
     Route: 048
  14. CHOLECALCIFEROL [Concomitant]
     Active Substance: CHOLECALCIFEROL
     Route: 048
  15. DEQUONAL [Concomitant]
     Route: 002

REACTIONS (4)
  - Febrile bone marrow aplasia [Not Recovered/Not Resolved]
  - Pancytopenia [Not Recovered/Not Resolved]
  - Aphthous ulcer [Not Recovered/Not Resolved]
  - Furuncle [Not Recovered/Not Resolved]

NARRATIVE: CASE EVENT DATE: 20200502
